APPROVED DRUG PRODUCT: FENOPROFEN CALCIUM
Active Ingredient: FENOPROFEN CALCIUM
Strength: EQ 600MG BASE
Dosage Form/Route: TABLET;ORAL
Application: A072902 | Product #001
Applicant: SUN PHARMACEUTICAL INDUSTRIES INC
Approved: Dec 21, 1990 | RLD: No | RS: No | Type: DISCN